FAERS Safety Report 25611007 (Version 3)
Quarter: 2025Q4

REPORT INFORMATION
  Report Type: Spontaneous
  Country: JP (occurrence: JP)
  Receive Date: 20250728
  Receipt Date: 20251113
  Transmission Date: 20260118
  Serious: Yes (Hospitalization)
  Sender: MERCK SHARP & DOHME LLC
  Company Number: JP-009507513-2312382

PATIENT
  Age: 54 Year
  Sex: Female
  Weight: 58 kg

DRUGS (20)
  1. KEYTRUDA [Suspect]
     Active Substance: PEMBROLIZUMAB
     Indication: Uterine cancer
     Dosage: STRENGTH: 100MG
     Route: 042
     Dates: start: 20240422, end: 20240828
  2. KEYTRUDA [Suspect]
     Active Substance: PEMBROLIZUMAB
     Indication: Uterine cancer
     Dosage: STRENGTH: 100MG
     Route: 042
     Dates: start: 20241023
  3. Loxoprofen Sodium tablet 60mg [Concomitant]
     Route: 062
  4. LENVIMA [Suspect]
     Active Substance: LENVATINIB
     Indication: Uterine cancer
     Dosage: STRENGTH: 10MG
     Route: 048
     Dates: start: 20240422, end: 20240905
  5. LENVIMA [Suspect]
     Active Substance: LENVATINIB
     Indication: Uterine cancer
     Dosage: STRENGTH: 10MG
     Route: 048
     Dates: start: 20241023
  6. ESOMEPRAZOLE [Concomitant]
     Active Substance: ESOMEPRAZOLE
     Route: 048
  7. URSODIOL [Concomitant]
     Active Substance: URSODIOL
     Route: 048
  8. CILOSTAZOL [Concomitant]
     Active Substance: CILOSTAZOL
     Route: 048
  9. BILASTINE [Concomitant]
     Active Substance: BILASTINE
     Route: 048
  10. ROSUVASTATIN CALCIUM [Concomitant]
     Active Substance: ROSUVASTATIN CALCIUM
     Route: 048
  11. ETHYL LOFLAZEPATE [Concomitant]
     Active Substance: ETHYL LOFLAZEPATE
     Route: 048
  12. LOXOPROFEN SODIUM [Concomitant]
     Active Substance: LOXOPROFEN SODIUM
     Route: 048
  13. LOXOPROFEN SODIUM [Concomitant]
     Active Substance: LOXOPROFEN SODIUM
     Route: 062
  14. HALCION [Concomitant]
     Active Substance: TRIAZOLAM
     Route: 048
  15. METOCLOPRAMIDE [Concomitant]
     Active Substance: METOCLOPRAMIDE
     Route: 048
  16. TELMISARTAN [Concomitant]
     Active Substance: TELMISARTAN
     Route: 048
  17. TRANEXAMIC ACID [Concomitant]
     Active Substance: TRANEXAMIC ACID
     Route: 048
  18. MAGNESIUM OXIDE [Concomitant]
     Active Substance: MAGNESIUM OXIDE
  19. DAYVIGO [Concomitant]
     Active Substance: LEMBOREXANT
     Route: 048
  20. DESPA KOWA ORAL CREAM [Concomitant]
     Route: 048

REACTIONS (4)
  - Adrenal insufficiency [Recovering/Resolving]
  - Arthritis [Unknown]
  - Drug eruption [Unknown]
  - Thyroid disorder [Unknown]

NARRATIVE: CASE EVENT DATE: 20240101
